FAERS Safety Report 6408752-6 (Version None)
Quarter: 2009Q4

REPORT INFORMATION
  Report Type: 
  Country: None (occurrence: None)
  Receive Date: 20091021
  Receipt Date: 20091013
  Transmission Date: 20100525
  Serious: Yes (Other)
  Sender: FDA-Public Use
  Company Number: A0793402A

PATIENT
  Age: 69 Year
  Sex: Male

DRUGS (1)
  1. ROSIGLITAZONE [Suspect]
     Route: 048
     Dates: start: 20021001, end: 20061101

REACTIONS (4)
  - MACULAR OEDEMA [None]
  - MYOCARDIAL INFARCTION [None]
  - MYOCARDIAL ISCHAEMIA [None]
  - RETINOPATHY [None]
